FAERS Safety Report 10551610 (Version 2)
Quarter: 2014Q4

REPORT INFORMATION
  Report Type: Spontaneous
  Country: US (occurrence: None)
  Receive Date: 20141027
  Receipt Date: 20141204
  Transmission Date: 20150529
  Serious: Yes (Other)
  Sender: FDA-Public Use
  Company Number: 2014-US-013553

PATIENT
  Age: 51 Year
  Sex: Male
  Weight: 81.2 kg

DRUGS (4)
  1. XYREM [Suspect]
     Active Substance: SODIUM OXYBATE
     Indication: FIBROMYALGIA
     Route: 048
     Dates: start: 20141014
  2. ADVIL [Concomitant]
     Active Substance: IBUPROFEN
  3. CHOLESTYRAMINE (COLESTYRAMINE) [Concomitant]
  4. ALL OTHER THERAPEUTIC PRODUCTS (INTESTINAL PEPTIDE) [Concomitant]

REACTIONS (5)
  - Respiratory tract congestion [None]
  - Off label use [None]
  - Throat irritation [None]
  - Multiple sclerosis [None]
  - Rhinorrhoea [None]

NARRATIVE: CASE EVENT DATE: 20141014
